FAERS Safety Report 4576683-2 (Version None)
Quarter: 2005Q1

REPORT INFORMATION
  Report Type: 
  Country: None (occurrence: None)
  Receive Date: 20050210
  Receipt Date: 20041209
  Transmission Date: 20050727
  Serious: Yes (Death)
  Sender: FDA-Public Use
  Company Number: 200413862JP

PATIENT
  Age: 65 Year
  Sex: Male
  Weight: 49.9 kg

DRUGS (11)
  1. TAXOTERE [Suspect]
     Indication: LUNG SQUAMOUS CELL CARCINOMA STAGE UNSPECIFIED
     Route: 041
     Dates: start: 20041015, end: 20041111
  2. KADIAN [Concomitant]
     Indication: CANCER PAIN
     Route: 048
     Dates: start: 20040721, end: 20041212
  3. GASTER [Concomitant]
     Indication: GASTRITIS
     Route: 048
     Dates: start: 20040730, end: 20041212
  4. AVISHOT [Concomitant]
     Indication: BENIGN PROSTATIC HYPERPLASIA
     Route: 048
     Dates: start: 20040726, end: 20041212
  5. TRYPTANOL [Concomitant]
     Indication: INFLAMMATION
     Route: 048
     Dates: start: 20041002, end: 20041212
  6. TRYPTANOL [Concomitant]
     Indication: PAIN
     Route: 048
     Dates: start: 20041002, end: 20041212
  7. HYPEN [Concomitant]
     Indication: INFLAMMATION
     Route: 048
     Dates: start: 20041031, end: 20041212
  8. HYPEN [Concomitant]
     Indication: PAIN
     Route: 048
     Dates: start: 20041031, end: 20041212
  9. CODEIN PHOSPHATE [Concomitant]
     Indication: COUGH
     Route: 048
     Dates: start: 20040720, end: 20041212
  10. MAGNESIUM OXIDE [Concomitant]
     Indication: CONSTIPATION
     Route: 048
     Dates: start: 20040717, end: 20041212
  11. BAKTAR [Concomitant]
     Indication: PNEUMOCYSTIS JIROVECI PNEUMONIA
     Route: 048
     Dates: start: 20041208, end: 20041210

REACTIONS (5)
  - CONDITION AGGRAVATED [None]
  - DYSPNOEA EXERTIONAL [None]
  - INTERSTITIAL LUNG DISEASE [None]
  - PURPURA [None]
  - RESPIRATORY FAILURE [None]
